FAERS Safety Report 17272100 (Version 3)
Quarter: 2022Q4

REPORT INFORMATION
  Report Type: Spontaneous
  Country: US (occurrence: US)
  Receive Date: 20200115
  Receipt Date: 20221227
  Transmission Date: 20230113
  Serious: Yes (Other)
  Sender: FDA-Public Use
  Company Number: US-PFIZER INC-2019149582

PATIENT
  Age: 63 Year
  Sex: Female
  Weight: 104 kg

DRUGS (1)
  1. XELJANZ XR [Suspect]
     Active Substance: TOFACITINIB CITRATE
     Indication: Psoriatic arthropathy
     Dosage: 11 MG, DAILY
     Dates: end: 201911

REACTIONS (7)
  - Polychondritis [Recovered/Resolved]
  - Illness [Not Recovered/Not Resolved]
  - Oropharyngeal pain [Recovered/Resolved]
  - Immune system disorder [Recovered/Resolved]
  - Ear infection [Unknown]
  - C-reactive protein increased [Unknown]
  - Pruritus [Unknown]

NARRATIVE: CASE EVENT DATE: 20190101
